FAERS Safety Report 5294758-X (Version None)
Quarter: 2007Q2

REPORT INFORMATION
  Report Type: 
  Country: None (occurrence: None)
  Receive Date: 20070406
  Receipt Date: 20070329
  Transmission Date: 20071010
  Serious: Yes (Death, Hospitalization)
  Sender: FDA-Public Use
  Company Number: 151564USA

PATIENT
  Age: 74 Year
  Sex: Female

DRUGS (17)
  1. CLOZAPINE [Suspect]
     Indication: PSYCHOTIC DISORDER
     Dosage: *75 MG), ORAL
     Route: 048
     Dates: start: 20060901
  2. DOCUSATE SODIUM [Concomitant]
  3. CALCIUM CARBONATE [Concomitant]
  4. ASCORBIC ACID [Concomitant]
  5. SENNA ALEXANDRINA [Concomitant]
  6. FLUDROCORTISONE ACETATE [Concomitant]
  7. FOLIC ACID [Concomitant]
  8. LEVOTHYROXINE SODIUM [Concomitant]
  9. LISINOPRIL [Concomitant]
  10. PLANTAGO OVATA [Concomitant]
  11. SIMVASTATIN [Concomitant]
  12. HALOPERIDOL [Concomitant]
  13. OXYCODONE HCL AND ACETAMINOPHEN [Concomitant]
  14. PHENYTOIN [Concomitant]
  15. BACTRIM [Concomitant]
  16. FERROUS SULFATE [Concomitant]
  17. MULTI-VITAMIN [Concomitant]

REACTIONS (7)
  - CARDIO-RESPIRATORY ARREST [None]
  - FALL [None]
  - HIP FRACTURE [None]
  - LETHARGY [None]
  - LEUKOCYTOSIS [None]
  - ORAL INTAKE REDUCED [None]
  - SUDDEN DEATH [None]
